FAERS Safety Report 24415196 (Version 2)
Quarter: 2024Q4

REPORT INFORMATION
  Report Type: Spontaneous
  Country: None (occurrence: US)
  Receive Date: 20241009
  Receipt Date: 20241011
  Transmission Date: 20250115
  Serious: No
  Sender: UROGEN PHARMA
  Company Number: US-UROGEN PHARMA LTD.-2024-UGN-000120

PATIENT

DRUGS (9)
  1. JELMYTO [Suspect]
     Active Substance: MITOMYCIN
     Indication: Transitional cell carcinoma
     Dosage: UNK, ONCE A WEEK (INSTILLATION)
     Route: 065
     Dates: start: 20240206, end: 20240206
  2. JELMYTO [Suspect]
     Active Substance: MITOMYCIN
     Dosage: UNK, ONCE A WEEK  (INSTILLATION)
     Route: 065
     Dates: start: 20240213, end: 20240213
  3. JELMYTO [Suspect]
     Active Substance: MITOMYCIN
     Dosage: UNK, ONCE A WEEK  (INSTILLATION)
     Route: 065
     Dates: start: 20240220, end: 20240220
  4. JELMYTO [Suspect]
     Active Substance: MITOMYCIN
     Dosage: UNK, ONCE A WEEK  (INSTILLATION)
     Route: 065
     Dates: start: 20240227, end: 20240227
  5. JELMYTO [Suspect]
     Active Substance: MITOMYCIN
     Dosage: UNK, ONCE A WEEK  (INSTILLATION)
     Route: 065
     Dates: start: 20240305, end: 20240305
  6. JELMYTO [Suspect]
     Active Substance: MITOMYCIN
     Dosage: UNK, ONCE A WEEK  (INSTILLATION)
     Route: 065
     Dates: start: 20240312, end: 20240312
  7. JELMYTO [Suspect]
     Active Substance: MITOMYCIN
     Dosage: UNK UNK, ONCE A MONTH (INSTILLATION)
     Route: 065
     Dates: start: 20240521, end: 20240521
  8. JELMYTO [Suspect]
     Active Substance: MITOMYCIN
     Dosage: UNK UNK, ONCE A MONTH (INSTILLATION)
     Route: 065
     Dates: start: 20240618, end: 20240618
  9. JELMYTO [Suspect]
     Active Substance: MITOMYCIN
     Dosage: UNK UNK, ONCE A MONTH (INSTILLATION)
     Route: 065
     Dates: start: 20240723, end: 20240723

REACTIONS (1)
  - Adverse event [Unknown]

NARRATIVE: CASE EVENT DATE: 20240101
